FAERS Safety Report 8320191 (Version 2)
Quarter: 2014Q4

REPORT INFORMATION
  Report Type: Spontaneous
  Country: US (occurrence: US)
  Receive Date: 20120103
  Receipt Date: 20141209
  Transmission Date: 20150529
  Serious: Yes (Other)
  Sender: FDA-Public Use
  Company Number: US-ASTRAZENECA-2011SE78539

PATIENT
  Age: 50 Year
  Sex: Female

DRUGS (2)
  1. TOPROL XL [Suspect]
     Active Substance: METOPROLOL SUCCINATE
     Route: 048
  2. NEXIUM [Suspect]
     Active Substance: ESOMEPRAZOLE MAGNESIUM
     Indication: GASTROOESOPHAGEAL REFLUX DISEASE
     Route: 048
     Dates: start: 2006

REACTIONS (7)
  - Intentional product misuse [Unknown]
  - Neoplasm malignant [Unknown]
  - Diarrhoea [Unknown]
  - Non-Hodgkin^s lymphoma [Unknown]
  - Gastrooesophageal reflux disease [Unknown]
  - Drug dose omission [Unknown]
  - Nausea [Unknown]

NARRATIVE: CASE EVENT DATE: 2008
